FAERS Safety Report 8975643 (Version 1)
Quarter: 2012Q4

REPORT INFORMATION
  Report Type: 
  Country: US (occurrence: US)
  Receive Date: 20121219
  Receipt Date: 20121219
  Transmission Date: 20130627
  Serious: No
  Sender: FDA-Public Use
  Company Number: US-PFIZER INC-2012318408

PATIENT
  Age: 43 Year
  Sex: Female
  Weight: 74.83 kg

DRUGS (5)
  1. CELEBREX [Suspect]
     Indication: SPONDYLITIS
     Dosage: UNK
  2. AMLODIPINE [Concomitant]
     Indication: BLOOD PRESSURE HIGH
     Dosage: 10 mg, daily
  3. DIOVAN (VALSARTAN) [Concomitant]
     Indication: BLOOD PRESSURE HIGH
     Dosage: 25 mg, daily
  4. INSULIN DETEMIR [Concomitant]
     Indication: TYPE II DIABETES MELLITUS
     Dosage: UNK
  5. JANUVIA [Concomitant]
     Indication: TYPE II DIABETES MELLITUS
     Dosage: UNK

REACTIONS (4)
  - Drug administration error [Unknown]
  - Intervertebral disc protrusion [Unknown]
  - Spondylitis [Unknown]
  - Drug ineffective [Unknown]
